FAERS Safety Report 17807190 (Version 1)
Quarter: 2020Q2

REPORT INFORMATION
  Report Type: Spontaneous
  Country: CA (occurrence: CA)
  Receive Date: 20200520
  Receipt Date: 20200520
  Transmission Date: 20200714
  Serious: Yes (Other)
  Sender: FDA-Public Use
  Company Number: CA-ROCHE-2598597

PATIENT
  Age: 42 Year
  Sex: Female
  Weight: 81 kg

DRUGS (21)
  1. ENBREL [Suspect]
     Active Substance: ETANERCEPT
     Indication: RHEUMATOID ARTHRITIS
     Route: 058
  2. SIMPONI [Suspect]
     Active Substance: GOLIMUMAB
     Indication: PRODUCT USED FOR UNKNOWN INDICATION
     Route: 058
  3. VENTOLINE [SALBUTAMOL] [Concomitant]
     Active Substance: ALBUTEROL SULFATE
  4. ACTEMRA [Suspect]
     Active Substance: TOCILIZUMAB
     Indication: PRODUCT USED FOR UNKNOWN INDICATION
     Route: 065
  5. PERCOCET [Suspect]
     Active Substance: ACETAMINOPHEN\OXYCODONE HYDROCHLORIDE
     Indication: PRODUCT USED FOR UNKNOWN INDICATION
     Route: 065
  6. CETIRIZINE HYDROCHLORIDE. [Concomitant]
     Active Substance: CETIRIZINE HYDROCHLORIDE
  7. DOCOSAHEXAENOIC ACID [Concomitant]
     Active Substance: DOCONEXENT
  8. HYDROXYCHLOROQUINE [Concomitant]
     Active Substance: HYDROXYCHLOROQUINE
  9. IBUPROFEN. [Concomitant]
     Active Substance: IBUPROFEN
  10. ORENCIA [Suspect]
     Active Substance: ABATACEPT
     Indication: PRODUCT USED FOR UNKNOWN INDICATION
     Route: 065
  11. COENZYME Q10 [UBIDECARENONE] [Concomitant]
  12. PREDNISONE. [Concomitant]
     Active Substance: PREDNISONE
  13. ARAVA [Suspect]
     Active Substance: LEFLUNOMIDE
     Indication: PRODUCT USED FOR UNKNOWN INDICATION
     Route: 065
  14. METHOTREXATE. [Suspect]
     Active Substance: METHOTREXATE
     Indication: PRODUCT USED FOR UNKNOWN INDICATION
     Route: 065
  15. APO-ZOPICLONE [Concomitant]
     Active Substance: ZOPICLONE
     Route: 065
  16. VITAMIN C [Concomitant]
     Active Substance: ASCORBIC ACID
  17. CIMZIA [Suspect]
     Active Substance: CERTOLIZUMAB PEGOL
     Indication: PRODUCT USED FOR UNKNOWN INDICATION
     Dosage: SINGLE-USE PREFILLED SYRINGE
     Route: 058
  18. PANTOPRAZOLE [Concomitant]
     Active Substance: PANTOPRAZOLE
  19. CHLORHEXIDINE GLUCONATE. [Suspect]
     Active Substance: CHLORHEXIDINE GLUCONATE
     Indication: PRODUCT USED FOR UNKNOWN INDICATION
     Route: 065
  20. CIMZIA [Suspect]
     Active Substance: CERTOLIZUMAB PEGOL
     Indication: RHEUMATOID ARTHRITIS
     Dosage: SINGLE-USE PREFILLED SYRINGE
     Route: 058
  21. TYLENOL [Concomitant]
     Active Substance: ACETAMINOPHEN

REACTIONS (21)
  - Abdominal pain upper [Unknown]
  - Insomnia [Unknown]
  - Asthenia [Unknown]
  - Lower respiratory tract infection [Unknown]
  - Off label use [Unknown]
  - Peripheral swelling [Unknown]
  - Respiratory disorder [Unknown]
  - Back pain [Unknown]
  - Diarrhoea [Unknown]
  - Headache [Unknown]
  - Night sweats [Unknown]
  - Vomiting [Unknown]
  - Body temperature increased [Unknown]
  - Muscle spasticity [Unknown]
  - Ear pain [Unknown]
  - Joint swelling [Unknown]
  - Sinusitis [Unknown]
  - Pain [Unknown]
  - Rash [Unknown]
  - Urticaria [Unknown]
  - Pruritus [Unknown]
